FAERS Safety Report 17599890 (Version 1)
Quarter: 2020Q1

REPORT INFORMATION
  Report Type: Report from Study
  Country: CO (occurrence: CO)
  Receive Date: 20200330
  Receipt Date: 20200330
  Transmission Date: 20200409
  Serious: Yes (Other)
  Sender: FDA-Public Use
  Company Number: CO-ROCHE-2450918

PATIENT
  Sex: Female

DRUGS (1)
  1. AVASTIN [Suspect]
     Active Substance: BEVACIZUMAB
     Indication: PRODUCT USED FOR UNKNOWN INDICATION
     Dosage: EVERY 8 DAYS
     Route: 065

REACTIONS (8)
  - Asthenopia [Unknown]
  - Dry eye [Unknown]
  - Vision blurred [Unknown]
  - Abdominal distension [Unknown]
  - Gingival discomfort [Unknown]
  - Visual impairment [Unknown]
  - Pain [Unknown]
  - Inflammation [Unknown]
